FAERS Safety Report 7515037-3 (Version None)
Quarter: 2011Q2

REPORT INFORMATION
  Report Type: 
  Country: None (occurrence: None)
  Receive Date: 20110601
  Receipt Date: 20110525
  Transmission Date: 20111010
  Serious: Yes (Death, Hospitalization, Other)
  Sender: FDA-Public Use
  Company Number: PHHY2011US08516

PATIENT
  Sex: Male

DRUGS (1)
  1. EXJADE [Suspect]
     Indication: NEOPLASM
     Dosage: 1000 MG, DAILY
     Route: 048

REACTIONS (5)
  - DEATH [None]
  - RENAL FAILURE ACUTE [None]
  - MULTIPLE MYELOMA [None]
  - PANCYTOPENIA [None]
  - BRONCHITIS [None]
